FAERS Safety Report 7707609-8 (Version None)
Quarter: 2011Q3

REPORT INFORMATION
  Report Type: 
  Country: None (occurrence: None)
  Receive Date: 20110824
  Receipt Date: 20110822
  Transmission Date: 20111222
  Serious: Yes (Other)
  Sender: FDA-Public Use
  Company Number: US-PFIZER INC-2011194381

PATIENT
  Age: 65 Year
  Sex: Male

DRUGS (1)
  1. LIPITOR [Suspect]
     Dosage: 80 MG, 1X/DAY
     Route: 048
     Dates: start: 20060101

REACTIONS (5)
  - HAEMOGLOBIN DECREASED [None]
  - GAIT DISTURBANCE [None]
  - MUSCULAR WEAKNESS [None]
  - SURGERY [None]
  - ASTHENIA [None]
